FAERS Safety Report 16000766 (Version 1)
Quarter: 2019Q1

REPORT INFORMATION
  Report Type: Spontaneous
  Country: US (occurrence: US)
  Receive Date: 20190224
  Receipt Date: 20190224
  Transmission Date: 20190418
  Serious: Yes (Disabling)
  Sender: FDA-Public Use
  Company Number: None

PATIENT
  Age: 18 Year
  Sex: Female
  Weight: 46.86 kg

DRUGS (2)
  1. INTUNIV XR, 1 MG MG [Suspect]
     Active Substance: GUANFACINE
     Indication: ATTENTION DEFICIT/HYPERACTIVITY DISORDER
     Dosage: ?          QUANTITY:1 TABLET(S);?
     Route: 048
     Dates: start: 20190103, end: 20190217
  2. INTUNIV XR, 1 MG MG [Suspect]
     Active Substance: GUANFACINE
     Indication: BIPOLAR DISORDER
     Dosage: ?          QUANTITY:1 TABLET(S);?
     Route: 048
     Dates: start: 20190103, end: 20190217

REACTIONS (2)
  - Complication associated with device [None]
  - Menorrhagia [None]

NARRATIVE: CASE EVENT DATE: 20190103
